FAERS Safety Report 25971916 (Version 1)
Quarter: 2025Q4

REPORT INFORMATION
  Report Type: Spontaneous
  Country: EU (occurrence: EU)
  Receive Date: 20251029
  Receipt Date: 20251029
  Transmission Date: 20260117
  Serious: Yes (Hospitalization, Other)
  Sender: PHARMOBEDIENT CONSULTING, LLC
  Company Number: EU-Pharmobedient-000371

PATIENT
  Age: 4 Year
  Sex: Female
  Weight: 18 kg

DRUGS (2)
  1. HYDROCHLOROTHIAZIDE [Suspect]
     Active Substance: HYDROCHLOROTHIAZIDE
     Indication: Product used for unknown indication
     Dosage: POTENTIAL MAXIMUM OF 62.5MG
  2. BISOPROLOL [Suspect]
     Active Substance: BISOPROLOL
     Indication: Product used for unknown indication
     Dosage: POTENTIAL MAXIMUM INGESTION OF 25 MG OF BISOPROLOL

REACTIONS (3)
  - Cardiotoxicity [Recovered/Resolved]
  - Accidental overdose [Unknown]
  - Bone metabolism disorder [Recovered/Resolved]
